FAERS Safety Report 8455049-9 (Version None)
Quarter: 2012Q2

REPORT INFORMATION
  Report Type: 
  Country: None (occurrence: None)
  Receive Date: 20120621
  Receipt Date: 20120614
  Transmission Date: 20120825
  Serious: Yes (Hospitalization)
  Sender: FDA-Public Use
  Company Number: FR-BAYER-2012-059751

PATIENT
  Age: 80 Year
  Sex: Male

DRUGS (3)
  1. GLYBURIDE [Suspect]
     Dosage: 5 MG, TID
     Route: 048
     Dates: end: 20120604
  2. GLUCOPHAGE [Interacting]
     Dosage: 500 MG, TID
     Route: 048
  3. ACARBOSE [Interacting]
     Dosage: 50 MG, TID
     Route: 048
     Dates: end: 20120604

REACTIONS (1)
  - HYPOGLYCAEMIA [None]
